FAERS Safety Report 7036906-7 (Version None)
Quarter: 2010Q4

REPORT INFORMATION
  Report Type: 
  Country: None (occurrence: None)
  Receive Date: 20101011
  Receipt Date: 20101005
  Transmission Date: 20110411
  Serious: Yes (Hospitalization)
  Sender: FDA-Public Use
  Company Number: JP-BAYER-201014243BYL

PATIENT
  Age: 80 Year
  Sex: Male
  Weight: 57 kg

DRUGS (10)
  1. NEXAVAR [Suspect]
     Indication: HEPATIC NEOPLASM MALIGNANT
     Dosage: TOTAL DAILY DOSE: 800 MG  UNIT DOSE: 200 MG
     Route: 048
     Dates: start: 20100607, end: 20100613
  2. NEXAVAR [Suspect]
     Dosage: TOTAL DAILY DOSE: 400 MG  UNIT DOSE: 200 MG
     Route: 048
     Dates: start: 20100614, end: 20100629
  3. FERRUM [Concomitant]
     Dosage: SINCE BEFORE ADMINISTRATION
     Route: 048
  4. BUP-4 [Concomitant]
     Route: 048
     Dates: start: 20100611, end: 20100621
  5. TAMSULOSIN HCL [Concomitant]
     Route: 048
     Dates: start: 20100618, end: 20100624
  6. MAGLAX [Concomitant]
     Route: 048
     Dates: start: 20100608
  7. PURSENNID [Concomitant]
     Route: 048
     Dates: start: 20100702
  8. LECICARBON [Concomitant]
     Route: 054
     Dates: start: 20100706, end: 20100706
  9. POSTERISAN [Concomitant]
     Route: 061
     Dates: start: 20100622
  10. GAMOFA D [Concomitant]
     Indication: GASTRITIS PROPHYLAXIS
     Route: 048
     Dates: start: 20100629

REACTIONS (11)
  - ABDOMINAL PAIN [None]
  - ALANINE AMINOTRANSFERASE INCREASED [None]
  - ASPARTATE AMINOTRANSFERASE INCREASED [None]
  - BLOOD BILIRUBIN INCREASED [None]
  - BLOOD SODIUM DECREASED [None]
  - DEHYDRATION [None]
  - DIARRHOEA [None]
  - HYPERTENSION [None]
  - MALAISE [None]
  - PALMAR-PLANTAR ERYTHRODYSAESTHESIA SYNDROME [None]
  - PLATELET COUNT DECREASED [None]
